FAERS Safety Report 6210074-3 (Version None)
Quarter: 2009Q2

REPORT INFORMATION
  Report Type: 
  Country: None (occurrence: None)
  Receive Date: 20090601
  Receipt Date: 20090528
  Transmission Date: 20091009
  Serious: Yes (Life-Threatening, Other)
  Sender: FDA-Public Use
  Company Number: BR-ROCHE-633365

PATIENT
  Age: 14 Year
  Sex: Male
  Weight: 58 kg

DRUGS (5)
  1. ROACUTAN [Suspect]
     Indication: ACNE
     Route: 048
     Dates: start: 20090201
  2. ROACUTAN [Suspect]
     Dosage: DOSAGE INCREASED.
     Route: 048
     Dates: start: 20090301, end: 20090501
  3. KEFLEX [Suspect]
     Indication: ACNE
     Route: 048
     Dates: start: 20090201, end: 20090201
  4. PREDNISONE [Suspect]
     Indication: ACNE
     Route: 048
     Dates: start: 20090201
  5. PREDNISONE [Suspect]
     Dosage: DOSAGE: 10 MG EVERY OTHER DAY. THERAPY STOP DATE: 2009.
     Route: 048
     Dates: start: 20090301

REACTIONS (4)
  - HYPERGLYCAEMIA [None]
  - KETOACIDOSIS [None]
  - TYPE 1 DIABETES MELLITUS [None]
  - WEIGHT DECREASED [None]
